FAERS Safety Report 14658766 (Version 1)
Quarter: 2018Q1

REPORT INFORMATION
  Report Type: Spontaneous
  Country: CA (occurrence: CA)
  Receive Date: 20180320
  Receipt Date: 20180320
  Transmission Date: 20180509
  Serious: Yes (Other)
  Sender: FDA-Public Use
  Company Number: CA-INVENTIA-000197

PATIENT
  Sex: Female

DRUGS (9)
  1. DULOXETINE. [Suspect]
     Active Substance: DULOXETINE
     Indication: DEPRESSION
     Dosage: LATER VIA BREAST MILK ALSO
     Route: 064
  2. IRON [Suspect]
     Active Substance: IRON
     Indication: PRODUCT USED FOR UNKNOWN INDICATION
     Route: 064
  3. DOCUSATE [Suspect]
     Active Substance: DOCUSATE
     Indication: PRODUCT USED FOR UNKNOWN INDICATION
     Route: 064
  4. CYCLOBENZAPRINE. [Suspect]
     Active Substance: CYCLOBENZAPRINE
     Indication: PRODUCT USED FOR UNKNOWN INDICATION
     Route: 064
  5. CONCERTA [Suspect]
     Active Substance: METHYLPHENIDATE HYDROCHLORIDE
     Indication: DEPRESSION
     Dosage: LATER VIA BREAST MILK ALSO
     Route: 064
  6. OMEPRAZOLE. [Suspect]
     Active Substance: OMEPRAZOLE
     Indication: PRODUCT USED FOR UNKNOWN INDICATION
     Route: 064
  7. INSULIN [Suspect]
     Active Substance: INSULIN NOS
     Indication: PRODUCT USED FOR UNKNOWN INDICATION
     Route: 064
  8. LEVOTHYROXINE. [Suspect]
     Active Substance: LEVOTHYROXINE
     Indication: HYPOTHYROIDISM
     Route: 064
  9. URSODEOXYCHOLIC ACID [Suspect]
     Active Substance: URSODIOL
     Indication: PRODUCT USED FOR UNKNOWN INDICATION
     Route: 064

REACTIONS (4)
  - Pneumonia [Unknown]
  - Foetal exposure during pregnancy [Unknown]
  - Pulmonary malformation [Unknown]
  - Lung cyst [Unknown]
